FAERS Safety Report 7480504-8 (Version None)
Quarter: 2011Q2

REPORT INFORMATION
  Report Type: 
  Country: None (occurrence: None)
  Receive Date: 20110504
  Receipt Date: 20110420
  Transmission Date: 20111010
  Serious: Yes (Hospitalization)
  Sender: FDA-Public Use
  Company Number: 2011SP018074

PATIENT
  Age: 75 Year
  Sex: Male

DRUGS (4)
  1. CACIT VITAMINA D3 [Concomitant]
  2. PEG-INTRON [Suspect]
     Indication: HEPATITIS C
     Dosage: 80 MCG; QW; SC
     Route: 058
     Dates: start: 20101105, end: 20110413
  3. FOLINA [Concomitant]
  4. COPEGUS [Concomitant]

REACTIONS (3)
  - CARDIAC FAILURE [None]
  - ATRIAL FIBRILLATION [None]
  - LEFT VENTRICULAR DYSFUNCTION [None]
